FAERS Safety Report 7812022-9 (Version None)
Quarter: 2011Q4

REPORT INFORMATION
  Report Type: 
  Country: None (occurrence: None)
  Receive Date: 20111013
  Receipt Date: 20110928
  Transmission Date: 20120403
  Serious: Yes (Other)
  Sender: FDA-Public Use
  Company Number: JP-ROCHE-1000536

PATIENT
  Age: 72 Year
  Sex: Female

DRUGS (3)
  1. REMICADE [Concomitant]
     Indication: RHEUMATOID ARTHRITIS
     Route: 042
  2. GANCICLOVIR [Suspect]
     Indication: CYTOMEGALOVIRUS INFECTION
     Route: 041
  3. METHOTREXATE [Concomitant]
     Indication: RHEUMATOID ARTHRITIS
     Route: 048

REACTIONS (3)
  - PANCYTOPENIA [None]
  - PERICARDITIS [None]
  - CYTOMEGALOVIRUS INFECTION [None]
